FAERS Safety Report 11981850 (Version 1)
Quarter: 2016Q1

REPORT INFORMATION
  Report Type: Spontaneous
  Country: US (occurrence: None)
  Receive Date: 20160129
  Receipt Date: 20160129
  Transmission Date: 20160526
  Serious: No
  Sender: FDA-Public Use
  Company Number: None

PATIENT
  Age: 56 Year
  Sex: Female

DRUGS (1)
  1. ADVAIR DISKUS [Suspect]
     Active Substance: FLUTICASONE PROPIONATE\SALMETEROL XINAFOATE
     Indication: ASTHMA
     Dosage: ONE PUFF BID INHALED, RESPIRATORY
     Dates: start: 201512

REACTIONS (3)
  - Dysphonia [None]
  - Pain [None]
  - Flushing [None]

NARRATIVE: CASE EVENT DATE: 20150101
